FAERS Safety Report 6651582-0 (Version None)
Quarter: 2010Q1

REPORT INFORMATION
  Report Type: 
  Country: None (occurrence: None)
  Receive Date: 20100325
  Receipt Date: 20100322
  Transmission Date: 20100710
  Serious: Yes (Other)
  Sender: FDA-Public Use
  Company Number: GB-ROCHE-692678

PATIENT
  Age: 61 Year
  Sex: Male

DRUGS (2)
  1. TAMIFLU [Suspect]
     Indication: H1N1 INFLUENZA
     Route: 065
  2. AMIODARONE HCL [Concomitant]
     Dosage: DRUG NAME: AMIADARONE

REACTIONS (1)
  - CARDIAC FAILURE [None]
